APPROVED DRUG PRODUCT: OXALIPLATIN
Active Ingredient: OXALIPLATIN
Strength: 100MG/VIAL
Dosage Form/Route: INJECTABLE;INTRAVENOUS
Application: A078819 | Product #002 | TE Code: AP
Applicant: FRESENIUS KABI USA LLC
Approved: Jun 2, 2010 | RLD: No | RS: No | Type: RX